FAERS Safety Report 21788891 (Version 1)
Quarter: 2022Q4

REPORT INFORMATION
  Report Type: Spontaneous
  Country: AT (occurrence: AT)
  Receive Date: 20221228
  Receipt Date: 20221228
  Transmission Date: 20230112
  Serious: Yes (Death, Hospitalization)
  Sender: FDA-Public Use
  Company Number: AT-MYLANLABS-2022M1143450

PATIENT
  Age: 73 Year
  Sex: Female

DRUGS (2)
  1. GEMCITABINE [Suspect]
     Active Substance: GEMCITABINE
     Indication: Bladder transitional cell carcinoma
     Dosage: UNK UNK, CYCLE
     Route: 065
     Dates: start: 201508, end: 201604
  2. CARBOPLATIN [Suspect]
     Active Substance: CARBOPLATIN
     Indication: Bladder transitional cell carcinoma
     Dosage: UNK, CYCLE
     Route: 065
     Dates: start: 201508, end: 201604

REACTIONS (2)
  - Drug ineffective [Fatal]
  - Disease progression [Unknown]

NARRATIVE: CASE EVENT DATE: 20160401
